FAERS Safety Report 13255314 (Version 1)
Quarter: 2017Q1

REPORT INFORMATION
  Report Type: Spontaneous
  Country: US (occurrence: US)
  Receive Date: 20170217
  Receipt Date: 20170217
  Transmission Date: 20170428
  Serious: Yes (Life-Threatening, Hospitalization, Disabling, Other)
  Sender: FDA-Public Use
  Company Number: None

PATIENT
  Age: 55 Year
  Sex: Female
  Weight: 61.65 kg

DRUGS (24)
  1. LISINOPRIL. [Concomitant]
     Active Substance: LISINOPRIL
  2. C-PAP MACHINE [Concomitant]
     Active Substance: DEVICE
  3. ZOMETA [Concomitant]
     Active Substance: ZOLEDRONIC ACID
  4. BENADRYL [Concomitant]
     Active Substance: DIPHENHYDRAMINE HYDROCHLORIDE
  5. VIACTIVE CALCIUM CHEWS [Concomitant]
  6. GLUTAMINE [Concomitant]
     Active Substance: GLUTAMINE
  7. DULERA [Concomitant]
     Active Substance: FORMOTEROL FUMARATE DIHYDRATE\MOMETASONE FUROATE
  8. ZYRTEC [Concomitant]
     Active Substance: CETIRIZINE HYDROCHLORIDE
  9. CORTISONE [Concomitant]
     Active Substance: CORTISONE\HYDROCORTISONE
  10. VENLAFAXINE [Concomitant]
     Active Substance: VENLAFAXINE HYDROCHLORIDE
  11. OMEPRAZOLE. [Concomitant]
     Active Substance: OMEPRAZOLE
  12. VITAMIN D [Concomitant]
     Active Substance: CHOLECALCIFEROL
  13. ANASTROZOLE. [Concomitant]
     Active Substance: ANASTROZOLE
  14. BONINE [Concomitant]
     Active Substance: MECLIZINE HYDROCHLORIDE
  15. TAXOL [Suspect]
     Active Substance: PACLITAXEL
     Indication: BREAST CANCER
     Dosage: INFUSED THROUGH MEDIPORT?
  16. ALBUTEROL. [Concomitant]
     Active Substance: ALBUTEROL
  17. ALEVE [Concomitant]
     Active Substance: NAPROXEN SODIUM
  18. LIDOCAINE. [Concomitant]
     Active Substance: LIDOCAINE
  19. PEPTO-BISMOL [Concomitant]
     Active Substance: BISMUTH SUBSALICYLATE
  20. MULTIVITAMIN [Concomitant]
     Active Substance: VITAMINS
  21. CARNATION BREAKFAST DRINK [Concomitant]
  22. C-BAND [Concomitant]
  23. CANE [Concomitant]
  24. ENSURE [Concomitant]
     Active Substance: AMINO ACIDS\DEXTROSE\ELECTROLYTES NOS\SOYBEAN OIL\VITAMINS

REACTIONS (12)
  - Blood pressure systolic increased [None]
  - Anxiety [None]
  - Device infusion issue [None]
  - Impaired driving ability [None]
  - Dizziness [None]
  - Chest pain [None]
  - Pain [None]
  - Screaming [None]
  - Neuropathy peripheral [None]
  - Activities of daily living impaired [None]
  - Crying [None]
  - Palpitations [None]

NARRATIVE: CASE EVENT DATE: 20160525
